FAERS Safety Report 6292547-0 (Version None)
Quarter: 2009Q3

REPORT INFORMATION
  Report Type: 
  Country: None (occurrence: None)
  Receive Date: 20090731
  Receipt Date: 20090721
  Transmission Date: 20100115
  Serious: Yes (Hospitalization)
  Sender: FDA-Public Use
  Company Number: ZA-PFIZER INC-2009165751

PATIENT
  Age: 70 Year

DRUGS (7)
  1. BLINDED *NO SUBJECT DRUG [Suspect]
     Indication: COLORECTAL CANCER
     Dosage: 25 MG, 1X/DAY
     Route: 048
     Dates: start: 20080528
  2. BLINDED *PLACEBO [Suspect]
     Indication: COLORECTAL CANCER
     Dosage: 25 MG, 1X/DAY
     Route: 048
     Dates: start: 20080528
  3. BLINDED SUNITINIB MALATE [Suspect]
     Indication: COLORECTAL CANCER
     Dosage: 25 MG, 1X/DAY
     Route: 048
     Dates: start: 20080528
  4. IRINOTECAN HCL [Suspect]
     Indication: COLORECTAL CANCER
     Dosage: 273.6 MG, EVERY 2 WEEKS
     Route: 042
     Dates: start: 20080528
  5. FLUOROURACIL [Suspect]
     Indication: COLORECTAL CANCER
     Dosage: 608 MG, EVERY 2 WEEKS
     Route: 040
     Dates: start: 20080528
  6. FLUOROURACIL [Suspect]
     Dosage: 3648 MG, EVERY 2WKS
     Route: 041
     Dates: start: 20080528
  7. CALCIUM FOLINATE [Suspect]
     Indication: COLORECTAL CANCER
     Dosage: 380 MG, EVERY 2 WEEKS
     Route: 042
     Dates: start: 20080528

REACTIONS (1)
  - ANAL ABSCESS [None]
